FAERS Safety Report 6960056-9 (Version None)
Quarter: 2010Q3

REPORT INFORMATION
  Report Type: 
  Country: None (occurrence: None)
  Receive Date: 20100901
  Receipt Date: 20100824
  Transmission Date: 20110219
  Serious: Yes (Congenital Anomaly)
  Sender: FDA-Public Use
  Company Number: DE-BAYER-201037513GPV

PATIENT

DRUGS (1)
  1. BETAFERON [Suspect]
     Indication: MULTIPLE SCLEROSIS
     Route: 064
     Dates: start: 20090501, end: 20090620

REACTIONS (3)
  - ATRIAL SEPTAL DEFECT [None]
  - FOETAL CARDIAC DISORDER [None]
  - HIP DYSPLASIA [None]
